FAERS Safety Report 6691816-X (Version None)
Quarter: 2010Q2

REPORT INFORMATION
  Report Type: 
  Country: None (occurrence: None)
  Receive Date: 20100422
  Receipt Date: 20090707
  Transmission Date: 20101027
  Serious: No
  Sender: FDA-Public Use
  Company Number: US-ASTRAZENECA-2009UW18828

PATIENT
  Age: 85 Year
  Sex: Female

DRUGS (3)
  1. TOPROL-XL [Suspect]
     Route: 048
  2. THYROID REPLACEMENT [Concomitant]
  3. ALLEGRA [Concomitant]

REACTIONS (4)
  - ANXIETY [None]
  - BLOOD CHOLESTEROL INCREASED [None]
  - GASTRITIS [None]
  - HEART RATE IRREGULAR [None]
